FAERS Safety Report 9464348 (Version 2)
Quarter: 2013Q3

REPORT INFORMATION
  Report Type: Spontaneous
  Country: GR (occurrence: GR)
  Receive Date: 20130819
  Receipt Date: 20130819
  Transmission Date: 20140515
  Serious: Yes (Death)
  Sender: FDA-Public Use
  Company Number: GR-PFIZER INC-2013211505

PATIENT
  Age: 18 Year
  Sex: Female

DRUGS (7)
  1. ZYVOXID [Suspect]
     Dosage: UNK
     Route: 042
     Dates: start: 2013, end: 201307
  2. ZYVOXID [Suspect]
     Dosage: UNK
     Route: 048
     Dates: start: 201307
  3. CIPROXIN [Concomitant]
  4. FLAGYL ^AVENTIS^ [Concomitant]
  5. KEPPRA [Concomitant]
  6. ZANTAC [Concomitant]
  7. ULTRA LEVURA [Concomitant]

REACTIONS (3)
  - Death [Fatal]
  - Hallucination [Unknown]
  - Vomiting [Unknown]
